FAERS Safety Report 10349734 (Version 1)
Quarter: 2014Q3

REPORT INFORMATION
  Report Type: Spontaneous
  Country: GB (occurrence: GB)
  Receive Date: 20140730
  Receipt Date: 20140730
  Transmission Date: 20150326
  Serious: Yes (Other)
  Sender: FDA-Public Use
  Company Number: PHFR2014GB005249

PATIENT
  Age: 33 Year
  Sex: Male

DRUGS (5)
  1. DESFERAL [Suspect]
     Active Substance: DEFEROXAMINE MESYLATE
     Indication: PRODUCT USED FOR UNKNOWN INDICATION
     Dosage: 4 G, (COMPOUNDED WITH 48 ML WFI AND 0.9 % SODIUM CHLORIDE) 1 ML/HR
     Route: 042
  2. SODIUM CHLORIDE. [Suspect]
     Active Substance: SODIUM CHLORIDE
     Indication: MEDICATION DILUTION
     Dosage: UNK
     Route: 042
  3. WATER FOR INJECTION [Suspect]
     Active Substance: WATER
     Indication: MEDICATION DILUTION
     Dosage: 1 ML/HR
     Route: 042
  4. DESFERAL [Suspect]
     Active Substance: DEFEROXAMINE MESYLATE
     Dosage: 4 G, (COMPOUNDED WITH 48 ML WFI AND 0.9 % SODIUM CHLORIDE) 1 ML/HR
     Route: 042
  5. DESFERAL [Suspect]
     Active Substance: DEFEROXAMINE MESYLATE
     Dosage: 4 G, (COMPOUNDED WITH 48 ML WFI AND 0.9 % SODIUM CHLORIDE) 1 ML/HR
     Route: 042

REACTIONS (4)
  - Tenderness [Not Recovered/Not Resolved]
  - Gastric infection [Not Recovered/Not Resolved]
  - Injection site vesicles [Not Recovered/Not Resolved]
  - Pain [Not Recovered/Not Resolved]
